FAERS Safety Report 4974080-9 (Version None)
Quarter: 2006Q2

REPORT INFORMATION
  Report Type: 
  Country: None (occurrence: None)
  Receive Date: 20060417
  Receipt Date: 20060407
  Transmission Date: 20061013
  Serious: Yes (Hospitalization)
  Sender: FDA-Public Use
  Company Number: FR-GLAXOSMITHKLINE-B0420208A

PATIENT
  Age: 19 Year
  Sex: Female

DRUGS (14)
  1. AUGMENTIN '125' [Suspect]
     Indication: PNEUMONIA
     Dosage: 1G THREE TIMES PER DAY
     Route: 042
     Dates: start: 20060112
  2. PARACETAMOL [Suspect]
     Dosage: 3G PER DAY
     Route: 048
     Dates: start: 20060107, end: 20060110
  3. PERFALGAN [Suspect]
     Indication: PNEUMONIA
     Dosage: 4G PER DAY
     Route: 042
     Dates: start: 20060112, end: 20060122
  4. ROVAMYCINE [Concomitant]
     Indication: PNEUMONIA
     Dosage: 1.5IU THREE TIMES PER DAY
     Route: 042
     Dates: start: 20060112
  5. MUCOMYST [Concomitant]
     Indication: PNEUMONIA
     Route: 065
     Dates: start: 20060112
  6. BIONOLYTE [Concomitant]
     Indication: PNEUMONIA
     Route: 065
     Dates: start: 20060112
  7. LOVENOX [Concomitant]
     Indication: PNEUMONIA
     Route: 065
     Dates: start: 20060113
  8. ACETAMINOPHEN W/ PROPOXYPHENE HCL [Concomitant]
     Route: 065
     Dates: start: 20060114, end: 20060121
  9. RHINOFLUIMUCIL [Concomitant]
     Route: 065
     Dates: start: 20060107
  10. BIOCALYPTOL [Concomitant]
     Route: 065
     Dates: start: 20060107
  11. NUROFEN [Concomitant]
     Route: 048
     Dates: start: 20060107
  12. DESOGESTREL AND ETHINYL ESTRADIOL [Concomitant]
     Route: 065
  13. VITAMINE C [Concomitant]
     Route: 065
  14. COLLU HEXTRIL [Concomitant]
     Dates: start: 20060107

REACTIONS (9)
  - ALANINE AMINOTRANSFERASE INCREASED [None]
  - ASPARTATE AMINOTRANSFERASE INCREASED [None]
  - BILIARY DILATATION [None]
  - BILIARY TRACT DISORDER [None]
  - BLOOD ALKALINE PHOSPHATASE INCREASED [None]
  - GAMMA-GLUTAMYLTRANSFERASE INCREASED [None]
  - INFLUENZA SEROLOGY POSITIVE [None]
  - LIPASE INCREASED [None]
  - PANCREATITIS [None]
